FAERS Safety Report 21006830 (Version 4)
Quarter: 2022Q4

REPORT INFORMATION
  Report Type: Report from Study
  Country: US (occurrence: US)
  Receive Date: 20220625
  Receipt Date: 20221111
  Transmission Date: 20230113
  Serious: Yes (Hospitalization, Other)
  Sender: FDA-Public Use
  Company Number: US-BRISTOL-MYERS SQUIBB COMPANY-2022-051110

PATIENT
  Age: 54 Year
  Sex: Female
  Weight: 90.26 kg

DRUGS (3)
  1. REVLIMID [Suspect]
     Active Substance: LENALIDOMIDE
     Indication: Plasma cell myeloma
     Dosage: EXP:DATE:30-SEP-2024
     Route: 048
     Dates: start: 201908
  2. REVLIMID [Suspect]
     Active Substance: LENALIDOMIDE
     Route: 048
  3. NINLARO [Concomitant]
     Active Substance: IXAZOMIB CITRATE
     Indication: Product used for unknown indication
     Route: 065

REACTIONS (7)
  - Colon neoplasm [Unknown]
  - Postoperative wound infection [Unknown]
  - COVID-19 [Recovered/Resolved]
  - Nasopharyngitis [Unknown]
  - Diarrhoea [Unknown]
  - Oropharyngeal pain [Unknown]
  - Sinus disorder [Unknown]

NARRATIVE: CASE EVENT DATE: 20221029
